FAERS Safety Report 5632843-0 (Version None)
Quarter: 2008Q1

REPORT INFORMATION
  Report Type: 
  Country: None (occurrence: None)
  Receive Date: 20080221
  Receipt Date: 20080218
  Transmission Date: 20080703
  Serious: Yes (Other)
  Sender: FDA-Public Use
  Company Number: FR-RB-000005-08

PATIENT
  Age: 48 Year
  Sex: Male

DRUGS (5)
  1. SUBUTEX [Suspect]
     Indication: DRUG USE FOR UNKNOWN INDICATION
     Dosage: HE OFTEN SPLITTED HIS DAILY DOSE
     Route: 065
  2. SERESTA [Concomitant]
     Indication: DRUG USE FOR UNKNOWN INDICATION
     Dosage: DOSAGE AND FREQUENCY UNKNOWN
     Route: 065
  3. TERCIAN [Concomitant]
     Indication: DRUG USE FOR UNKNOWN INDICATION
     Dosage: DOSAGE AND FREQUENCY UNKNOWN
     Route: 065
  4. ROHYPNOL [Concomitant]
     Dosage: DOSAGE AND FREQUENCY UNKNOWN
     Route: 065
  5. NOCTAMIDE [Concomitant]
     Indication: DRUG USE FOR UNKNOWN INDICATION
     Dosage: DOSAGE AND FREQUENCY UNKNOWN
     Route: 065

REACTIONS (7)
  - ANXIETY [None]
  - DEPRESSION [None]
  - INCORRECT DOSE ADMINISTERED [None]
  - RESPIRATORY DISORDER [None]
  - SUICIDAL IDEATION [None]
  - TENSION [None]
  - WITHDRAWAL SYNDROME [None]
